FAERS Safety Report 9958422 (Version 2)
Quarter: 2014Q2

REPORT INFORMATION
  Report Type: Report from Study
  Country: GB (occurrence: GB)
  Receive Date: 20140305
  Receipt Date: 20140505
  Transmission Date: 20141212
  Serious: Yes (Hospitalization, Other)
  Sender: FDA-Public Use
  Company Number: GB-ROCHE-1359351

PATIENT
  Age: 68 Year
  Sex: Male

DRUGS (7)
  1. RANIBIZUMAB [Suspect]
     Indication: PRODUCT USED FOR UNKNOWN INDICATION
     Route: 065
     Dates: start: 2010
  2. RANIBIZUMAB [Suspect]
     Route: 065
     Dates: start: 2011
  3. RANIBIZUMAB [Suspect]
     Route: 065
     Dates: start: 20130324
  4. LISINOPRIL [Concomitant]
     Indication: HYPERTENSION
     Route: 065
     Dates: start: 2013
  5. LISINOPRIL [Concomitant]
     Route: 065
     Dates: start: 20130326
  6. TAMSULOSIN [Concomitant]
     Indication: PROSTATOMEGALY
     Route: 065
     Dates: start: 20130315
  7. TAMSULOSIN [Concomitant]
     Route: 065
     Dates: start: 20130326

REACTIONS (3)
  - Haematuria [Recovered/Resolved]
  - Prostatic obstruction [Recovered/Resolved with Sequelae]
  - Heart valve incompetence [Unknown]
